FAERS Safety Report 6729264-6 (Version None)
Quarter: 2010Q2

REPORT INFORMATION
  Report Type: 
  Country: None (occurrence: None)
  Receive Date: 20100517
  Receipt Date: 20100429
  Transmission Date: 20101027
  Serious: No
  Sender: FDA-Public Use
  Company Number: US-ABBOTT-10P-163-0641416-00

PATIENT
  Sex: Male

DRUGS (4)
  1. SIMCOR [Suspect]
     Indication: LOW DENSITY LIPOPROTEIN INCREASED
     Dosage: ONE TABLET AT BEDTIME
     Dates: start: 20091229
  2. SIMCOR [Suspect]
     Indication: HIGH DENSITY LIPOPROTEIN DECREASED
  3. CENTRUM [Concomitant]
     Indication: DRUG USE FOR UNKNOWN INDICATION
  4. FISH OIL [Concomitant]
     Indication: DRUG USE FOR UNKNOWN INDICATION

REACTIONS (1)
  - PRURITUS [None]
